FAERS Safety Report 10866167 (Version 1)
Quarter: 2015Q1

REPORT INFORMATION
  Report Type: Spontaneous
  Country: GB (occurrence: None)
  Receive Date: 20150219
  Receipt Date: 20150219
  Transmission Date: 20150721
  Serious: Yes (Other)
  Sender: FDA-Public Use
  Company Number: FK201500756

PATIENT

DRUGS (3)
  1. METOPROLOL INJECTION (MANUFACTURER UNKNOWN) (METOPROLOL TARTRATE) (METOPROLOL TARTRATE ) [Suspect]
     Active Substance: METOPROLOL
     Indication: HEART RATE
     Dosage: UNKNOWN, EVERY 30 SCONDS
  2. NITROGLYCERN (GLYCERYL TRINITRATE) [Suspect]
     Active Substance: NITROGLYCERIN
     Indication: PRODUCT USED FOR UNKNOWN INDICATION
     Route: 060
  3. NIOPAM (IOPAMIDOL) [Suspect]
     Active Substance: IOPAMIDOL
     Indication: SCAN WITH CONTRAST

REACTIONS (1)
  - Sinus tachycardia [None]
